FAERS Safety Report 8168594-0 (Version None)
Quarter: 2012Q1

REPORT INFORMATION
  Report Type: 
  Country: None (occurrence: None)
  Receive Date: 20120227
  Receipt Date: 20120227
  Transmission Date: 20120608
  Serious: No
  Sender: FDA-Public Use
  Company Number: None

PATIENT
  Age: 56 Year
  Sex: Male
  Weight: 102.05 kg

DRUGS (1)
  1. SUBOXONE [Suspect]
     Indication: PAIN
     Dosage: 2 MG
     Route: 060
     Dates: start: 20061001, end: 20120301

REACTIONS (3)
  - TEMPERATURE INTOLERANCE [None]
  - MOUTH ULCERATION [None]
  - OROPHARYNGEAL BLISTERING [None]
